FAERS Safety Report 5595153-6 (Version None)
Quarter: 2008Q1

REPORT INFORMATION
  Report Type: 
  Country: None (occurrence: None)
  Receive Date: 20080117
  Receipt Date: 20080116
  Transmission Date: 20080703
  Serious: Yes (Hospitalization, Disabling)
  Sender: FDA-Public Use
  Company Number: FI-WYE-G00903808

PATIENT
  Sex: Female

DRUGS (9)
  1. TIGECYCLINE [Suspect]
     Indication: PATHOGEN RESISTANCE
     Route: 042
     Dates: start: 20071111, end: 20071127
  2. FENTANYL [Concomitant]
     Indication: PAIN
     Route: 061
     Dates: start: 20071106, end: 20071127
  3. DIGOXIN [Concomitant]
     Indication: CARDIAC FAILURE
     Dosage: UNSPECIFIED
     Route: 048
  4. SPIRESIS [Concomitant]
     Indication: CARDIAC FAILURE
     Route: 048
  5. BISOPROLOL FUMARATE [Concomitant]
     Indication: HYPERTENSION
     Route: 048
  6. KALINORM [Concomitant]
     Indication: HYPOKALAEMIA
     Route: 048
  7. FURESIS [Concomitant]
     Indication: CARDIAC FAILURE
     Route: 048
  8. PREDNISOLONE [Concomitant]
     Indication: RHEUMATOID ARTHRITIS
     Route: 048
  9. MAREVAN [Concomitant]
     Indication: ATRIAL FIBRILLATION
     Dosage: UNSPECIFIED
     Route: 048

REACTIONS (3)
  - HEARING IMPAIRED [None]
  - MEMORY IMPAIRMENT [None]
  - NAUSEA [None]
